FAERS Safety Report 23572594 (Version 1)
Quarter: 2024Q1

REPORT INFORMATION
  Report Type: Spontaneous
  Country: US (occurrence: US)
  Receive Date: 20240227
  Receipt Date: 20240227
  Transmission Date: 20240410
  Serious: No
  Sender: FDA-Public Use
  Company Number: US-AVADEL CNS PHARMACEUTICALS, LLC-2023AVA00433

PATIENT
  Sex: Female
  Weight: 65.76 kg

DRUGS (16)
  1. LUMRYZ [Suspect]
     Active Substance: SODIUM OXYBATE
     Indication: Narcolepsy
     Dosage: ^2 G^
     Route: 048
     Dates: start: 20231006, end: 2023
  2. LUMRYZ [Suspect]
     Active Substance: SODIUM OXYBATE
     Dosage: 4.5 G, 1X/DAY AT BEDTIME
     Route: 048
     Dates: start: 2023, end: 2023
  3. LUMRYZ [Suspect]
     Active Substance: SODIUM OXYBATE
     Indication: Narcolepsy
     Dosage: 6 G, 1X/DAY AT BEDTIME
     Route: 048
     Dates: start: 2023, end: 2023
  4. LUMRYZ [Suspect]
     Active Substance: SODIUM OXYBATE
     Indication: Narcolepsy
     Dosage: 7.5 G, 1X/DAY AT BEDTIME
     Route: 048
     Dates: start: 2023, end: 202311
  5. LUMRYZ [Suspect]
     Active Substance: SODIUM OXYBATE
     Indication: Narcolepsy
     Dosage: 9 G, ONCE NIGHTLY AT BEDTIME
     Route: 048
     Dates: start: 202311, end: 20231127
  6. QULIPTA [Concomitant]
     Active Substance: ATOGEPANT
     Dosage: 60 MG, 1X/DAY
  7. ADDERALL XR [Concomitant]
     Active Substance: AMPHETAMINE ASPARTATE\AMPHETAMINE SULFATE\DEXTROAMPHETAMINE SACCHARATE\DEXTROAMPHETAMINE SULFATE
     Dosage: 25 MG, 1X/DAY
  8. KETOROLAC TROMETHAMINE [Concomitant]
     Active Substance: KETOROLAC TROMETHAMINE
     Dosage: 60 MG, AS NEEDED
     Route: 030
  9. SUMATRIPTAN [Concomitant]
     Active Substance: SUMATRIPTAN
     Dosage: 6 MG, AS NEEDED
     Route: 058
  10. KLONOPIN [Concomitant]
     Active Substance: CLONAZEPAM
     Indication: Migraine
     Dosage: 0.5 MG, AS NEEDED (VERY RARELY TAKEN)
     Route: 048
  11. VITAMINS NOS [Concomitant]
     Active Substance: VITAMINS
     Dosage: 1X/DAY
  12. BOTOX [Concomitant]
     Active Substance: ONABOTULINUMTOXINA
  13. TRINTELLIX [Concomitant]
     Active Substance: VORTIOXETINE HYDROBROMIDE
  14. VALTREX [Concomitant]
     Active Substance: VALACYCLOVIR HYDROCHLORIDE
  15. REGLAN [Concomitant]
     Active Substance: METOCLOPRAMIDE HYDROCHLORIDE
  16. REYVOW [Concomitant]
     Active Substance: LASMIDITAN

REACTIONS (12)
  - Moaning [Recovered/Resolved]
  - Peripheral coldness [Recovered/Resolved]
  - Dyspnoea [Recovered/Resolved]
  - Time perception altered [Recovered/Resolved]
  - Incoherent [Recovered/Resolved]
  - Memory impairment [Recovered/Resolved]
  - Muscle spasms [Recovered/Resolved]
  - Enuresis [Recovered/Resolved]
  - Disorientation [Recovered/Resolved]
  - Feeling drunk [Recovered/Resolved]
  - Panic attack [Recovered/Resolved]
  - Intentional dose omission [Recovered/Resolved]

NARRATIVE: CASE EVENT DATE: 20230101
